FAERS Safety Report 10799237 (Version 1)
Quarter: 2015Q1

REPORT INFORMATION
  Report Type: Spontaneous
  Country: US (occurrence: US)
  Receive Date: 20150216
  Receipt Date: 20150216
  Transmission Date: 20150721
  Serious: No
  Sender: FDA-Public Use
  Company Number: US-ALLERGAN-1400151US

PATIENT
  Sex: Female

DRUGS (4)
  1. EYE RELIEF [Concomitant]
     Indication: EYE IRRIGATION
     Dosage: UNK
  2. RESTASIS [Suspect]
     Active Substance: CYCLOSPORINE
     Indication: DRY EYE
     Dosage: 2 GTT, SINGLE
     Route: 047
     Dates: start: 2012, end: 2012
  3. BLOOD PRESSURE MEDICATION NOS [Concomitant]
     Active Substance: UNSPECIFIED INGREDIENT
     Indication: HYPERTENSION
     Dosage: UNK
  4. THYROID MEDICATION NOS [Concomitant]
     Indication: THYROID DISORDER
     Dosage: UNK

REACTIONS (1)
  - Instillation site pain [Recovered/Resolved]
